FAERS Safety Report 7049378-3 (Version None)
Quarter: 2010Q4

REPORT INFORMATION
  Report Type: 
  Country: None (occurrence: None)
  Receive Date: 20101012
  Receipt Date: 20101001
  Transmission Date: 20110411
  Serious: Yes (Life-Threatening, Hospitalization)
  Sender: FDA-Public Use
  Company Number: GRP10000090

PATIENT
  Age: 69 Year
  Sex: Female
  Weight: 49 kg

DRUGS (6)
  1. DIDRONEL [Suspect]
     Indication: OSTEOPOROSIS
     Dosage: 200 MG, ORAL
     Route: 048
     Dates: start: 20040101, end: 20080531
  2. ASS (ACETYLSALICYLIC ACID) TABLET, 100MG [Suspect]
     Indication: HEPATIC CIRRHOSIS
     Dosage: 100 MG, 1/DAY, ORAL
     Route: 048
     Dates: start: 20060101, end: 20080531
  3. ALLOPURINOL [Concomitant]
  4. SPIRONOLACTONE [Concomitant]
  5. XIPAMIDE (XIPAMIDE) [Concomitant]
  6. CALCIUM (CALCIUM) [Concomitant]

REACTIONS (6)
  - COAGULOPATHY [None]
  - GASTROINTESTINAL ULCER HAEMORRHAGE [None]
  - HEPATIC CIRRHOSIS [None]
  - HIATUS HERNIA [None]
  - REFLUX OESOPHAGITIS [None]
  - UPPER GASTROINTESTINAL HAEMORRHAGE [None]
